FAERS Safety Report 7259755-3 (Version None)
Quarter: 2011Q1

REPORT INFORMATION
  Report Type: 
  Country: None (occurrence: None)
  Receive Date: 20110130
  Receipt Date: 20100924
  Transmission Date: 20110831
  Serious: No
  Sender: FDA-Public Use
  Company Number: US-ABBOTT-10P-163-0662497-00

PATIENT
  Age: 53 Year
  Sex: Female

DRUGS (5)
  1. BETA BLOCKER [Concomitant]
     Indication: PRODUCT USED FOR UNKNOWN INDICATION
  2. BLOOD PRESSURE PILLS [Concomitant]
     Indication: PRODUCT USED FOR UNKNOWN INDICATION
  3. AMLODIPINE BESYLATE AND BENAZEPRIL HCL [Concomitant]
     Indication: PRODUCT USED FOR UNKNOWN INDICATION
  4. TOPROL-XL [Concomitant]
     Indication: PRODUCT USED FOR UNKNOWN INDICATION
  5. HUMIRA [Suspect]
     Indication: SERONEGATIVE ARTHRITIS
     Dates: start: 20100605

REACTIONS (3)
  - INCORRECT DOSE ADMINISTERED [None]
  - INJECTION SITE PAIN [None]
  - DEVICE MALFUNCTION [None]
